FAERS Safety Report 11349149 (Version 2)
Quarter: 2015Q3

REPORT INFORMATION
  Report Type: Spontaneous
  Country: AR (occurrence: AR)
  Receive Date: 20150807
  Receipt Date: 20150821
  Transmission Date: 20151125
  Serious: Yes (Other)
  Sender: FDA-Public Use
  Company Number: AR-ORION CORPORATION ORION PHARMA-ENT 2015-0970

PATIENT
  Age: 56 Year
  Sex: Male

DRUGS (3)
  1. OMEPRAZOLE. [Concomitant]
     Active Substance: OMEPRAZOLE
     Route: 065
  2. COMTAN [Suspect]
     Active Substance: ENTACAPONE
     Indication: PARKINSON^S DISEASE
     Route: 048
     Dates: start: 20150515
  3. COMTAN [Suspect]
     Active Substance: ENTACAPONE
     Dosage: SPLIT TABLET
     Route: 065
     Dates: start: 20150729

REACTIONS (13)
  - Product difficult to swallow [Unknown]
  - Foreign body [Unknown]
  - Abdominal rigidity [Unknown]
  - Oesophageal pain [Unknown]
  - Musculoskeletal stiffness [Unknown]
  - Oesophageal discomfort [Unknown]
  - Wrong technique in product usage process [Unknown]
  - Product quality issue [Unknown]
  - Product physical issue [Unknown]
  - Intervertebral disc protrusion [Unknown]
  - Ischaemia [Unknown]
  - Back pain [Unknown]
  - Blood pressure fluctuation [Unknown]

NARRATIVE: CASE EVENT DATE: 20150729
